FAERS Safety Report 23832911 (Version 1)
Quarter: 2024Q2

REPORT INFORMATION
  Report Type: Spontaneous
  Country: US (occurrence: US)
  Receive Date: 20240508
  Receipt Date: 20240508
  Transmission Date: 20240715
  Serious: No
  Sender: FDA-Public Use
  Company Number: US-SA-SAC20240506000494

PATIENT
  Age: 9 Year
  Sex: Male

DRUGS (1)
  1. DUPIXENT [Suspect]
     Active Substance: DUPILUMAB
     Indication: Eczema
     Dosage: 200 MG, Q15D
     Route: 058
     Dates: start: 202402, end: 2024

REACTIONS (2)
  - Injection site pain [Recovered/Resolved]
  - Injection site bruising [Recovered/Resolved]

NARRATIVE: CASE EVENT DATE: 20240101
